FAERS Safety Report 7676540-9 (Version None)
Quarter: 2011Q3

REPORT INFORMATION
  Report Type: 
  Country: None (occurrence: None)
  Receive Date: 20110805
  Receipt Date: 20110722
  Transmission Date: 20111222
  Serious: No
  Sender: FDA-Public Use
  Company Number: LTI2011A00045

PATIENT
  Age: 60 Year
  Sex: Male

DRUGS (7)
  1. MEDIATOR (BENFLUOREX HYDROCHLORIDE) [Concomitant]
  2. VELMETIA (SITAGLIPTINE, METFORMINE) [Concomitant]
  3. METFORMIN HCL [Concomitant]
  4. XELEVIA (SITALGLIPTINE) [Concomitant]
  5. GLYBURIDE [Concomitant]
  6. ACTOS [Suspect]
     Indication: TYPE 2 DIABETES MELLITUS
     Dosage: 15 MG (15 MG,1 IN 1 D) ORAL : 30 MG (30 MG,1 IN 1 D) ORAL
     Route: 048
     Dates: start: 20100213, end: 20100426
  7. ACTOS [Suspect]
     Indication: TYPE 2 DIABETES MELLITUS
     Dosage: 15 MG (15 MG,1 IN 1 D) ORAL : 30 MG (30 MG,1 IN 1 D) ORAL
     Route: 048
     Dates: start: 20100426, end: 20110204

REACTIONS (1)
  - BLADDER TRANSITIONAL CELL CARCINOMA [None]
